FAERS Safety Report 20413080 (Version 1)
Quarter: 2022Q1

REPORT INFORMATION
  Report Type: Report from Study
  Country: US (occurrence: US)
  Receive Date: 20220201
  Receipt Date: 20220201
  Transmission Date: 20220423
  Serious: Yes (Other)
  Sender: FDA-Public Use
  Company Number: US-JNJFOC-20211144502

PATIENT
  Age: 52 Year
  Sex: Female
  Weight: 107.14 kg

DRUGS (1)
  1. RIVAROXABAN [Suspect]
     Active Substance: RIVAROXABAN
     Indication: Deep vein thrombosis
     Dosage: AT NIGHT
     Route: 048
     Dates: start: 20051102

REACTIONS (5)
  - Thrombosis [Unknown]
  - Seizure [Recovering/Resolving]
  - Rash pruritic [Recovering/Resolving]
  - Swollen tongue [Recovering/Resolving]
  - Dizziness [Recovering/Resolving]
